FAERS Safety Report 4929953-X (Version None)
Quarter: 2006Q1

REPORT INFORMATION
  Report Type: 
  Country: None (occurrence: None)
  Receive Date: 20060127
  Receipt Date: 20051110
  Transmission Date: 20060701
  Serious: Yes (Other)
  Sender: FDA-Public Use
  Company Number: 2005154676

PATIENT
  Age: 22 Year
  Sex: Male
  Weight: 66.2252 kg

DRUGS (5)
  1. LYRICA [Suspect]
     Indication: NEURALGIA
     Dosage: 300 MG (150 MG 2 IN 1 D)
     Dates: start: 20050914, end: 20051101
  2. INSULIN (INSULIN) [Concomitant]
  3. METHADONE HCL [Concomitant]
  4. WELLBUTRIN [Concomitant]
  5. NEURONTIN [Concomitant]

REACTIONS (1)
  - OEDEMA [None]
